FAERS Safety Report 6190460-0 (Version None)
Quarter: 2009Q2

REPORT INFORMATION
  Report Type: 
  Country: None (occurrence: None)
  Receive Date: 20090514
  Receipt Date: 20090506
  Transmission Date: 20091009
  Serious: Yes (Other)
  Sender: FDA-Public Use
  Company Number: PHHY2009BR17473

PATIENT
  Age: 59 Year
  Sex: Female

DRUGS (3)
  1. OCTREOTIDE ACETATE [Suspect]
     Dosage: 150 MCG/DAY
     Route: 058
     Dates: start: 20020401
  2. OCTREOTIDE ACETATE [Suspect]
     Indication: ACROMEGALY
     Dosage: 20 MG, QMO
     Route: 030
     Dates: start: 20030301
  3. ANTINEOPLASTIC AGENTS [Concomitant]

REACTIONS (9)
  - ASTHENIA [None]
  - BLOOD CREATININE INCREASED [None]
  - BONE PAIN [None]
  - HAEMATOLOGICAL MALIGNANCY [None]
  - MULTIPLE MYELOMA [None]
  - OSTEOLYSIS [None]
  - PANCYTOPENIA [None]
  - PROTEINURIA [None]
  - URINE ABNORMALITY [None]
